FAERS Safety Report 21573076 (Version 2)
Quarter: 2022Q4

REPORT INFORMATION
  Report Type: Spontaneous
  Country: IT (occurrence: IT)
  Receive Date: 20221109
  Receipt Date: 20221201
  Transmission Date: 20230113
  Serious: Yes (Other)
  Sender: FDA-Public Use
  Company Number: None

PATIENT
  Age: 77 Year
  Sex: Female

DRUGS (1)
  1. HALCION [Suspect]
     Active Substance: TRIAZOLAM
     Dosage: 2 G
     Route: 048
     Dates: start: 20220908, end: 20220908

REACTIONS (4)
  - Overdose [Unknown]
  - Poisoning [Recovering/Resolving]
  - Drug abuse [Unknown]
  - Abdominal pain upper [Recovering/Resolving]

NARRATIVE: CASE EVENT DATE: 20220908
